FAERS Safety Report 23259360 (Version 1)
Quarter: 2023Q4

REPORT INFORMATION
  Report Type: Report from Study
  Country: ES (occurrence: ES)
  Receive Date: 20231204
  Receipt Date: 20231204
  Transmission Date: 20240110
  Serious: Yes (Hospitalization)
  Sender: FDA-Public Use
  Company Number: None

PATIENT
  Age: 63 Year
  Sex: Female

DRUGS (2)
  1. CISPLATIN [Suspect]
     Active Substance: CISPLATIN
     Indication: Invasive ductal breast carcinoma
     Dosage: UNK
     Dates: start: 202010, end: 20201222
  2. GEMCITABINE HYDROCHLORIDE [Suspect]
     Active Substance: GEMCITABINE HYDROCHLORIDE
     Indication: Invasive ductal breast carcinoma
     Dosage: UNK
     Dates: start: 202010, end: 20201222

REACTIONS (2)
  - Thrombocytopenia [Recovering/Resolving]
  - Enteritis [Recovering/Resolving]

NARRATIVE: CASE EVENT DATE: 20210101
